FAERS Safety Report 15791312 (Version 1)
Quarter: 2019Q1

REPORT INFORMATION
  Report Type: Spontaneous
  Country: US (occurrence: US)
  Receive Date: 20190104
  Receipt Date: 20190104
  Transmission Date: 20190417
  Serious: Yes (Life-Threatening, Hospitalization, Disabling)
  Sender: FDA-Public Use
  Company Number: None

PATIENT
  Age: 57 Year
  Sex: Female
  Weight: 88.65 kg

DRUGS (12)
  1. CEFTRIAXONE. [Concomitant]
     Active Substance: CEFTRIAXONE
  2. FLECAINIDE [Concomitant]
     Active Substance: FLECAINIDE
  3. MORPHINE SULFATE ER [Suspect]
     Active Substance: MORPHINE SULFATE
     Indication: PAIN
     Dosage: ?          QUANTITY:1 TABLET(S);?
     Route: 048
     Dates: start: 20171117, end: 20180123
  4. FLUCONAZOLE. [Concomitant]
     Active Substance: FLUCONAZOLE
  5. FISH OIL [Concomitant]
     Active Substance: FISH OIL
  6. DOXYCYCLINE. [Concomitant]
     Active Substance: DOXYCYCLINE
  7. MULTIVITAMIN [Concomitant]
     Active Substance: VITAMINS
  8. FAMITODINE [Concomitant]
  9. APAP/ HYDROCODONE [Suspect]
     Active Substance: ACETAMINOPHEN\HYDROCODONE BITARTRATE
     Indication: PAIN
     Dosage: ?          QUANTITY:1 TABLET(S);?
     Route: 048
  10. ARMOUR THYROID [Concomitant]
     Active Substance: THYROID, PORCINE
  11. VITAMIN D3 [Concomitant]
     Active Substance: CHOLECALCIFEROL
  12. PROBIOTICS [Concomitant]
     Active Substance: PROBIOTICS NOS

REACTIONS (27)
  - Therapy cessation [None]
  - Arrhythmia [None]
  - Pain [None]
  - Ulcer [None]
  - Suicidal ideation [None]
  - Dysstasia [None]
  - Post-traumatic stress disorder [None]
  - Withdrawal syndrome [None]
  - Muscle spasms [None]
  - Restlessness [None]
  - Serotonin syndrome [None]
  - Meningitis [None]
  - Inability to afford medication [None]
  - Nausea [None]
  - Insomnia [None]
  - Diarrhoea [None]
  - Crying [None]
  - Hyperhidrosis [None]
  - Drug use disorder [None]
  - Abdominal pain upper [None]
  - Inadequate analgesia [None]
  - Suicide attempt [None]
  - Drug ineffective [None]
  - Abdominal pain [None]
  - Hypophagia [None]
  - Dehydration [None]
  - Contraindicated product administered [None]

NARRATIVE: CASE EVENT DATE: 20180123
